FAERS Safety Report 21005740 (Version 3)
Quarter: 2022Q3

REPORT INFORMATION
  Report Type: Spontaneous
  Country: JP (occurrence: JP)
  Receive Date: 20220624
  Receipt Date: 20220713
  Transmission Date: 20221027
  Serious: Yes (Other)
  Sender: FDA-Public Use
  Company Number: JP-JNJFOC-20220643147

PATIENT
  Age: 82 Year
  Sex: Male

DRUGS (14)
  1. ERLEADA [Suspect]
     Active Substance: APALUTAMIDE
     Indication: Prostate cancer
     Dosage: DOSE UNKNOWN
     Route: 048
     Dates: start: 202204, end: 20220610
  2. BICALUTAMIDE [Concomitant]
     Active Substance: BICALUTAMIDE
     Dosage: AFTER BREAKFAST
     Route: 048
  3. NAFTOPIDIL [Concomitant]
     Active Substance: NAFTOPIDIL
     Route: 048
  4. DUTASTERIDE:AV [Concomitant]
     Dosage: AFTER DINNER
     Route: 048
  5. ELSAMET [Concomitant]
     Dosage: AFTER BREAKFAST, AFTER DINNER
     Route: 048
  6. VILDAGLIPTIN [Concomitant]
     Active Substance: VILDAGLIPTIN
     Dosage: AFTER BREAKFAST, AFTER DINNER
     Route: 048
  7. FEBUXOSTAT [Concomitant]
     Active Substance: FEBUXOSTAT
     Route: 048
  8. ROSUVASTATIN [Concomitant]
     Active Substance: ROSUVASTATIN
     Route: 048
  9. XARELTO [Concomitant]
     Active Substance: RIVAROXABAN
     Dosage: AFTER BREAKFAST
     Route: 048
  10. GLIMEPIRIDE [Concomitant]
     Active Substance: GLIMEPIRIDE
     Dosage: AFTER BREAKFAST
     Route: 048
  11. GLIMEPIRIDE [Concomitant]
     Active Substance: GLIMEPIRIDE
     Dosage: AFTER DINNER
     Route: 048
  12. VOGLIBOSE [Concomitant]
     Active Substance: VOGLIBOSE
     Dosage: BEFORE EACH MEAL
     Route: 048
  13. LANSOPRAZOLE [Concomitant]
     Active Substance: LANSOPRAZOLE
     Dosage: AFTER BREAKFAST
     Route: 048
  14. MAGNESIUM OXIDE [Concomitant]
     Active Substance: MAGNESIUM OXIDE
     Dosage: AFTER EACH MEAL
     Route: 048

REACTIONS (1)
  - Diabetes mellitus [Unknown]

NARRATIVE: CASE EVENT DATE: 20220501
